FAERS Safety Report 9753118 (Version 2)
Quarter: 2015Q3

REPORT INFORMATION
  Report Type: Spontaneous
  Country: US (occurrence: US)
  Receive Date: 20131213
  Receipt Date: 20150805
  Transmission Date: 20151125
  Serious: No
  Sender: FDA-Public Use
  Company Number: US-GILEAD-2010-0027255

PATIENT
  Age: 25 Year
  Sex: Female
  Weight: 72.57 kg

DRUGS (10)
  1. REVATIO [Concomitant]
     Active Substance: SILDENAFIL CITRATE
  2. MIDODRINE [Concomitant]
     Active Substance: MIDODRINE
  3. DIGOXIN. [Concomitant]
     Active Substance: DIGOXIN
  4. AMIODARONE [Concomitant]
     Active Substance: AMIODARONE
  5. FERROUS SULFATE [Concomitant]
     Active Substance: FERROUS SULFATE\FERROUS SULFATE, DRIED
  6. TOPIRAMATE. [Concomitant]
     Active Substance: TOPIRAMATE
  7. DOCQLACE [Concomitant]
     Active Substance: DOCUSATE SODIUM
  8. LEVETIRACETAM. [Concomitant]
     Active Substance: LEVETIRACETAM
  9. LETAIRIS [Suspect]
     Active Substance: AMBRISENTAN
     Indication: PULMONARY ARTERIAL HYPERTENSION
     Route: 048
     Dates: start: 20100130
  10. LASIX [Concomitant]
     Active Substance: FUROSEMIDE

REACTIONS (1)
  - Hearing impaired [Unknown]
